FAERS Safety Report 8621985-3 (Version None)
Quarter: 2012Q3

REPORT INFORMATION
  Report Type: 
  Country: None (occurrence: None)
  Receive Date: 20120823
  Receipt Date: 20120823
  Transmission Date: 20120928
  Serious: Yes (Other)
  Sender: FDA-Public Use
  Company Number: None

PATIENT
  Age: 46 Year
  Sex: Male
  Weight: 79.3795 kg

DRUGS (1)
  1. CETIRIZINE HCL [Suspect]
     Indication: SEASONAL ALLERGY
     Dosage: 1 DAY
     Dates: start: 20100601, end: 20120817

REACTIONS (3)
  - DEPENDENCE [None]
  - WITHDRAWAL SYNDROME [None]
  - PRURITUS [None]
